FAERS Safety Report 17208426 (Version 1)
Quarter: 2019Q4

REPORT INFORMATION
  Report Type: Report from Study
  Country: DE (occurrence: DE)
  Receive Date: 20191227
  Receipt Date: 20191227
  Transmission Date: 20200122
  Serious: Yes (Hospitalization)
  Sender: FDA-Public Use
  Company Number: DE-MYLANLABS-2019M1127398

PATIENT
  Sex: Male

DRUGS (6)
  1. SIMVASTATIN. [Concomitant]
     Active Substance: SIMVASTATIN
     Indication: BLOOD CHOLESTEROL DECREASED
     Dosage: 40 OT, UNK
     Route: 048
  2. CLOPIDOGREL [Suspect]
     Active Substance: CLOPIDOGREL BISULFATE
     Indication: MYOCARDIAL INFARCTION
     Dosage: 75 OT, UNK
     Route: 048
  3. JAKAVI [Suspect]
     Active Substance: RUXOLITINIB
     Dosage: 10 MG, BID
     Route: 048
     Dates: start: 20181123, end: 20190110
  4. ASPIRIN. [Suspect]
     Active Substance: ASPIRIN
     Indication: MYOCARDIAL INFARCTION
     Dosage: 100 OT, UNK
     Route: 048
  5. JAKAVI [Suspect]
     Active Substance: RUXOLITINIB
     Indication: POLYCYTHAEMIA VERA
     Dosage: 10 MG, BID
     Route: 048
     Dates: start: 20190206, end: 20190405
  6. RAMIPRIL. [Concomitant]
     Active Substance: RAMIPRIL
     Indication: MYOCARDIAL INFARCTION
     Dosage: 2.5 OT, UNK
     Route: 048

REACTIONS (1)
  - Gastrointestinal haemorrhage [Recovered/Resolved]

NARRATIVE: CASE EVENT DATE: 20190318
